FAERS Safety Report 9238341 (Version 1)
Quarter: 2013Q1

REPORT INFORMATION
  Report Type: Spontaneous
  Country: US (occurrence: None)
  Receive Date: 20121106
  Receipt Date: 20121106
  Transmission Date: 20140127
  Serious: No
  Sender: FDA-Public Use
  Company Number: 1000037385

PATIENT
  Age: 51 Year
  Sex: Female

DRUGS (14)
  1. DALIRESP [Suspect]
     Indication: CHRONIC OBSTRUCTIVE PULMONARY DISEASE
     Route: 048
     Dates: start: 201206, end: 201207
  2. DALIRESP [Suspect]
     Indication: ASTHMA
     Route: 048
     Dates: start: 201206, end: 201207
  3. LEVOTHYROXINE (LEVOTHYROXINE SODIUM) (LEVOTHYROXINE SODIUM0 [Concomitant]
  4. SYMBICORT (BUDESONIDE W/FORMOTEROL FUMARATE (BUDESONIDE W/FORMOTEROL FUMARATE) [Concomitant]
  5. ALBUTEROL (ALBUTEROL) (ALBUTEROL) [Concomitant]
  6. FLOVENT (FLUTICASONE PROPIONATE) (FLUTICASONE PROPIONATE) [Concomitant]
  7. FUROSEMIDE [Concomitant]
  8. KLOR-CON (POTASSIUM CHLORIDE) (POTASSIUM CHLORIDE) [Concomitant]
  9. PROZAC (FLUOXETINE HYDROCHLORIDE) (FLUOXETINE HYDROCHLORIDE) [Concomitant]
  10. TRAMADOL (TRAMADOL) (TRAMADOL0 [Concomitant]
  11. KLONOPIN (CLONAZEPAM ) (CLONAZEPAM) [Concomitant]
  12. AMITRIPTYLINE (AMITRIPTYLINE) (AMITRIPTYLINE) [Concomitant]
  13. GABAPENTIN (GABAPENTIN) (GABAPENTIN) [Concomitant]
  14. OXYGEN (OXYGEN) (OXYGEN0 [Concomitant]

REACTIONS (2)
  - Musculoskeletal discomfort [None]
  - Oropharyngeal pain [None]
